FAERS Safety Report 23274573 (Version 1)
Quarter: 2023Q4

REPORT INFORMATION
  Report Type: Spontaneous
  Country: US (occurrence: US)
  Receive Date: 20231208
  Receipt Date: 20231208
  Transmission Date: 20240110
  Serious: Yes (Hospitalization)
  Sender: FDA-Public Use
  Company Number: US-BRISTOL-MYERS SQUIBB COMPANY-2023-175155

PATIENT
  Age: 71 Year
  Sex: Female

DRUGS (1)
  1. POMALYST [Suspect]
     Active Substance: POMALIDOMIDE
     Indication: Plasma cell myeloma
     Dosage: FREQUENCY- TAKE 1 CAPSULE BY MOUTH WITH WATER ON AN EMPTY STOMACH EVERY DAY ON DAYS 1-14 OF EACH 28
     Route: 048
     Dates: start: 20230823

REACTIONS (3)
  - Renal disorder [Recovering/Resolving]
  - Haemoglobin decreased [Recovered/Resolved]
  - Off label use [Unknown]
